FAERS Safety Report 24335675 (Version 1)
Quarter: 2024Q3

REPORT INFORMATION
  Report Type: Spontaneous
  Country: US (occurrence: US)
  Receive Date: 20240919
  Receipt Date: 20240919
  Transmission Date: 20241017
  Serious: No
  Sender: BRISTOL MYERS SQUIBB
  Company Number: US-BRISTOL-MYERS SQUIBB COMPANY-2024-146964

PATIENT
  Age: 42 Year
  Sex: Female

DRUGS (5)
  1. ZEPOSIA [Suspect]
     Active Substance: OZANIMOD HYDROCHLORIDE
     Indication: Multiple sclerosis
  2. BACLOFEN [Concomitant]
     Active Substance: BACLOFEN
  3. MAGNESIUM OXIDE [Concomitant]
     Active Substance: MAGNESIUM OXIDE
  4. ZTLIDO [Concomitant]
     Active Substance: LIDOCAINE
  5. UBROGEPANT [Concomitant]
     Active Substance: UBROGEPANT

REACTIONS (2)
  - Multiple sclerosis relapse [Unknown]
  - Drug intolerance [Unknown]
